FAERS Safety Report 8034161-2 (Version None)
Quarter: 2012Q1

REPORT INFORMATION
  Report Type: 
  Country: None (occurrence: None)
  Receive Date: 20120110
  Receipt Date: 20120104
  Transmission Date: 20120608
  Serious: No
  Sender: FDA-Public Use
  Company Number: US-B.I. PHARMACEUTICALS,INC./RIDGEFIELD-2011-BP-27175BP

PATIENT
  Age: 14 Year
  Sex: Male

DRUGS (2)
  1. ZANTAC 150 [Suspect]
     Indication: ABDOMINAL PAIN UPPER
     Dosage: 150 MG
     Route: 048
     Dates: start: 20111130
  2. BISMUTH SUBSALICYLATE [Suspect]

REACTIONS (2)
  - ABDOMINAL PAIN UPPER [None]
  - TONGUE DISCOLOURATION [None]
